FAERS Safety Report 19145479 (Version 2)
Quarter: 2021Q2

REPORT INFORMATION
  Report Type: Report from Study
  Country: US (occurrence: US)
  Receive Date: 20210416
  Receipt Date: 20210505
  Transmission Date: 20210717
  Serious: Yes (Death, Hospitalization)
  Sender: FDA-Public Use
  Company Number: US-BAUSCH-BL-2021-013618

PATIENT
  Age: 69 Year
  Sex: Female

DRUGS (5)
  1. XIFAXAN [Suspect]
     Active Substance: RIFAXIMIN
     Indication: HEPATIC ENCEPHALOPATHY
     Dosage: DOSE DECREASED TO ONCE DAILY APPROXIMATELY 3 TO 4 WEEKS AGO
     Route: 048
     Dates: start: 2021, end: 2021
  2. LACTULOSE. [Suspect]
     Active Substance: LACTULOSE
     Route: 065
     Dates: start: 202104
  3. XIFAXAN [Suspect]
     Active Substance: RIFAXIMIN
     Indication: HEPATIC CIRRHOSIS
     Dosage: STARTED APPROXIMATELY 2 MONTHS AGO
     Route: 048
     Dates: start: 2021, end: 2021
  4. LACTULOSE. [Suspect]
     Active Substance: LACTULOSE
     Indication: PRODUCT USED FOR UNKNOWN INDICATION
     Route: 065
     Dates: end: 2021
  5. XIFAXAN [Suspect]
     Active Substance: RIFAXIMIN
     Dosage: RESUMED ON TWICE DAILY DOSING AFTER DISCHARGED FROM THE HOSPITAL
     Route: 048
     Dates: start: 202104

REACTIONS (5)
  - Death [Fatal]
  - Intentional product use issue [Unknown]
  - Infection [Recovered/Resolved]
  - Inability to afford medication [Unknown]
  - Ammonia increased [Recovered/Resolved]

NARRATIVE: CASE EVENT DATE: 2021
